FAERS Safety Report 6801615-3 (Version None)
Quarter: 2010Q2

REPORT INFORMATION
  Report Type: 
  Country: None (occurrence: None)
  Receive Date: 20100629
  Receipt Date: 20100617
  Transmission Date: 20101027
  Serious: Yes (Death, Life-Threatening)
  Sender: FDA-Public Use
  Company Number: US-MERCK-1006USA02833

PATIENT
  Age: 105 Year
  Sex: Female

DRUGS (3)
  1. FOSAMAX [Suspect]
     Indication: OSTEOPOROSIS
     Route: 048
     Dates: start: 20080101
  2. MULTIVITAMIN [Concomitant]
     Route: 065
  3. ASCORBIC ACID [Concomitant]
     Route: 065

REACTIONS (3)
  - DEATH [None]
  - IMPLANT SITE PAIN [None]
  - ORAL DISCOMFORT [None]
